FAERS Safety Report 7280475-3 (Version None)
Quarter: 2011Q1

REPORT INFORMATION
  Report Type: 
  Country: None (occurrence: None)
  Receive Date: 20110208
  Receipt Date: 20110204
  Transmission Date: 20110831
  Serious: Yes (Other)
  Sender: FDA-Public Use
  Company Number: US-PFIZER INC-2009313151

PATIENT
  Sex: Male

DRUGS (2)
  1. LIPITOR [Suspect]
     Indication: BLOOD CHOLESTEROL ABNORMAL
     Dosage: UNK
  2. THORAZINE [Suspect]
     Dosage: UNK

REACTIONS (9)
  - MYALGIA [None]
  - BLOOD TEST ABNORMAL [None]
  - GYNAECOMASTIA [None]
  - NEPHROLITHIASIS [None]
  - HYPOAESTHESIA [None]
  - NERVOUS SYSTEM DISORDER [None]
  - MASS EXCISION [None]
  - MUSCLE ATROPHY [None]
  - ARTHRALGIA [None]
